FAERS Safety Report 9712151 (Version 3)
Quarter: 2014Q1

REPORT INFORMATION
  Report Type: Spontaneous
  Country: CH (occurrence: CH)
  Receive Date: 20131126
  Receipt Date: 20140106
  Transmission Date: 20141002
  Serious: Yes (Other)
  Sender: FDA-Public Use
  Company Number: CH-B.I. PHARMACEUTICALS,INC./RIDGEFIELD-2013-BI-36338SI

PATIENT
  Age: 83 Year
  Sex: Male
  Weight: 80 kg

DRUGS (5)
  1. PRADAXA [Suspect]
     Indication: EMBOLIC STROKE
     Dosage: 220 MG
     Route: 048
     Dates: start: 201305, end: 20130703
  2. PRADAXA [Suspect]
     Indication: ATRIAL FIBRILLATION
  3. SINTROM [Concomitant]
     Indication: CEREBROVASCULAR ACCIDENT
  4. TORASEMID [Concomitant]
     Indication: CARDIOVASCULAR EVENT PROPHYLAXIS
  5. ATORVASTATIN [Concomitant]
     Indication: HYPERCHOLESTEROLAEMIA

REACTIONS (7)
  - Pancreatitis [Recovered/Resolved]
  - Gastrointestinal disorder [Recovered/Resolved]
  - Nausea [Recovered/Resolved]
  - Vomiting [Recovered/Resolved]
  - Decreased appetite [Recovered/Resolved]
  - Liver disorder [Recovered/Resolved]
  - Pancreatic disorder [Recovered/Resolved]
